FAERS Safety Report 7268707-9 (Version None)
Quarter: 2011Q1

REPORT INFORMATION
  Report Type: 
  Country: None (occurrence: None)
  Receive Date: 20110121
  Receipt Date: 20110105
  Transmission Date: 20110831
  Serious: Yes (Disabling)
  Sender: FDA-Public Use
  Company Number: 2011SP000724

PATIENT
  Age: 16 Year
  Sex: Female

DRUGS (2)
  1. IMPLANON [Suspect]
     Indication: PRODUCT USED FOR UNKNOWN INDICATION
     Dates: start: 20100601
  2. CO-CODAMOL [Concomitant]

REACTIONS (6)
  - ARTHRALGIA [None]
  - DYSMENORRHOEA [None]
  - MOBILITY DECREASED [None]
  - GAIT DISTURBANCE [None]
  - PAIN [None]
  - MENORRHAGIA [None]
